FAERS Safety Report 8308991-3 (Version None)
Quarter: 2012Q2

REPORT INFORMATION
  Report Type: 
  Country: None (occurrence: None)
  Receive Date: 20120424
  Receipt Date: 20120419
  Transmission Date: 20120825
  Serious: Yes (Other)
  Sender: FDA-Public Use
  Company Number: DE-PFIZER INC-2012062724

PATIENT
  Age: 64 Year
  Sex: Female

DRUGS (2)
  1. LYRICA [Suspect]
     Indication: PAIN
     Dosage: 375 MG, 150 -75-150
     Dates: start: 20050101
  2. NITRAZEPAM [Suspect]
     Indication: PAIN

REACTIONS (6)
  - HYPOAESTHESIA ORAL [None]
  - SPEECH DISORDER [None]
  - PAIN IN EXTREMITY [None]
  - FATIGUE [None]
  - CONVULSION [None]
  - BLOOD PRESSURE FLUCTUATION [None]
